FAERS Safety Report 8482141-5 (Version None)
Quarter: 2012Q3

REPORT INFORMATION
  Report Type: 
  Country: None (occurrence: None)
  Receive Date: 20120702
  Receipt Date: 20120626
  Transmission Date: 20120928
  Serious: Yes (Other)
  Sender: FDA-Public Use
  Company Number: US-PFIZER INC-2012126231

PATIENT
  Sex: Female
  Weight: 67.1 kg

DRUGS (7)
  1. PREMARIN [Suspect]
     Indication: OFF LABEL USE
     Dosage: UNK,3 TIMES A WEEK
     Route: 067
  2. COREG [Concomitant]
     Indication: BLOOD PRESSURE ABNORMAL
     Dosage: 25 MG, 1X/DAY
  3. VASOTEC [Concomitant]
     Indication: BLOOD PRESSURE ABNORMAL
     Dosage: 20 MG, 1X/DAY
  4. PREMARIN [Suspect]
     Dosage: UNK
     Route: 067
  5. NORVASC [Concomitant]
     Indication: BLOOD PRESSURE ABNORMAL
     Dosage: 10 MG, 1X/DAY
  6. PREMARIN [Suspect]
     Indication: PELVIC PROLAPSE
     Dosage: UNK
  7. CLONIDINE [Concomitant]
     Indication: BLOOD PRESSURE ABNORMAL
     Dosage: 10 MG, 1X/DAY

REACTIONS (6)
  - EXPIRED DRUG ADMINISTERED [None]
  - ANKLE FRACTURE [None]
  - DRUG INEFFECTIVE [None]
  - FEELING ABNORMAL [None]
  - PAIN [None]
  - POOR QUALITY DRUG ADMINISTERED [None]
